FAERS Safety Report 21204114 (Version 1)
Quarter: 2022Q3

REPORT INFORMATION
  Report Type: Report from Study
  Country: US (occurrence: None)
  Receive Date: 20220812
  Receipt Date: 20220812
  Transmission Date: 20221027
  Serious: Yes (Other)
  Sender: FDA-Public Use
  Company Number: US-ROCHE-3157388

PATIENT

DRUGS (1)
  1. ATEZOLIZUMAB [Suspect]
     Active Substance: ATEZOLIZUMAB
     Indication: Colon cancer stage III
     Dosage: 30-60 MINUTES STARTING ON DAY 1 OF CYCLE 1 OR 2. TREATMENT REPEATS EVERY 14 DAYS FOR UP TO 25 CYCLES
     Route: 042

REACTIONS (2)
  - Pneumonia [Unknown]
  - Neutrophil count decreased [Unknown]

NARRATIVE: CASE EVENT DATE: 20220624
